FAERS Safety Report 6420277-0 (Version None)
Quarter: 2009Q4

REPORT INFORMATION
  Report Type: 
  Country: None (occurrence: None)
  Receive Date: 20091029
  Receipt Date: 20091020
  Transmission Date: 20100525
  Serious: No
  Sender: FDA-Public Use
  Company Number: US-B.I. PHARMACEUTICALS,INC./RIDGEFIELD-2009-BP-10350BP

PATIENT
  Age: 55 Year
  Sex: Female
  Weight: 60.8 kg

DRUGS (7)
  1. MICARDIS HCT [Suspect]
     Indication: HYPERTENSION
     Route: 048
     Dates: start: 20090401
  2. MICARDIS HCT [Suspect]
     Indication: DIURETIC THERAPY
     Route: 048
     Dates: start: 20090301, end: 20090401
  3. FOSAMAX [Concomitant]
     Indication: OSTEOPENIA
  4. DIAZEPAM [Concomitant]
  5. KLONOPIN [Concomitant]
  6. PROAIR HFA [Concomitant]
  7. ADVAIR DISKUS 100/50 [Concomitant]

REACTIONS (15)
  - BODY DYSMORPHIC DISORDER [None]
  - CONSTIPATION [None]
  - DEPRESSION [None]
  - DIARRHOEA [None]
  - DRUG INEFFECTIVE [None]
  - DYSKINESIA [None]
  - FLATULENCE [None]
  - HAEMATOCHEZIA [None]
  - INSOMNIA [None]
  - MALAISE [None]
  - RESTLESS LEGS SYNDROME [None]
  - SOMNAMBULISM [None]
  - VERTIGO [None]
  - VISUAL IMPAIRMENT [None]
  - WEIGHT INCREASED [None]
